FAERS Safety Report 22087331 (Version 2)
Quarter: 2023Q2

REPORT INFORMATION
  Report Type: Other
  Country: PK (occurrence: None)
  Receive Date: 20230313
  Receipt Date: 20230407
  Transmission Date: 20230721
  Serious: Yes (Other)
  Sender: FDA-Public Use
  Company Number: PK-ROCHE-3301257

PATIENT
  Age: 56 Year
  Sex: Male

DRUGS (2)
  1. BEVACIZUMAB [Suspect]
     Active Substance: BEVACIZUMAB
     Indication: Diabetic retinopathy
     Dosage: 0.1 ML OF 1.25 MG
     Route: 050
  2. BEVACIZUMAB [Suspect]
     Active Substance: BEVACIZUMAB
     Indication: Macular oedema

REACTIONS (4)
  - Endophthalmitis [Recovered/Resolved]
  - Suspected transmission of an infectious agent via product [Unknown]
  - Off label use [Unknown]
  - Off label use [Unknown]
